FAERS Safety Report 12657613 (Version 3)
Quarter: 2016Q4

REPORT INFORMATION
  Report Type: Spontaneous
  Country: US (occurrence: US)
  Receive Date: 20160816
  Receipt Date: 20161006
  Transmission Date: 20170207
  Serious: Yes (Other)
  Sender: FDA-Public Use
  Company Number: US-PFIZER INC-2016381941

PATIENT
  Age: 56 Year
  Sex: Female

DRUGS (5)
  1. GABAPENTIN. [Suspect]
     Active Substance: GABAPENTIN
     Indication: BACK DISORDER
     Dosage: 600 MG, 3X/DAY (DOUBLE AMOUNT)
     Dates: end: 20160817
  2. TRAMADOL. [Concomitant]
     Active Substance: TRAMADOL
     Dosage: 200 MG, UNK
     Dates: start: 200807
  3. CYCLOBENZAPRINE [Concomitant]
     Active Substance: CYCLOBENZAPRINE
     Dosage: 10 MG, UNK
     Dates: start: 200303
  4. GABAPENTIN. [Suspect]
     Active Substance: GABAPENTIN
     Indication: LIMB INJURY
     Dosage: 300 MG, 3X/DAY
     Dates: start: 20160625
  5. DICLOFENAC [Concomitant]
     Active Substance: DICLOFENAC
     Dosage: 50 MG, UNK
     Dates: start: 200303

REACTIONS (5)
  - Paraesthesia [Recovered/Resolved]
  - Drug ineffective for unapproved indication [Recovered/Resolved]
  - Abasia [Recovered/Resolved]
  - Pain [Recovered/Resolved]
  - Pain in extremity [Recovered/Resolved]

NARRATIVE: CASE EVENT DATE: 201606
